FAERS Safety Report 4776769-3 (Version None)
Quarter: 2005Q3

REPORT INFORMATION
  Report Type: 
  Country: None (occurrence: None)
  Receive Date: 20050923
  Receipt Date: 20050915
  Transmission Date: 20060218
  Serious: Yes (Hospitalization)
  Sender: FDA-Public Use
  Company Number: US-BOEHRINGER INGELHEIM PHARMACEUTICALS, INC.-2005-BP-16400BP

PATIENT
  Sex: Female

DRUGS (20)
  1. COMBIVENT [Suspect]
     Indication: CHRONIC OBSTRUCTIVE PULMONARY DISEASE
     Dosage: 2 PUFFS QID
     Route: 055
     Dates: start: 20020101
  2. QUINAPRIL [Concomitant]
     Route: 048
  3. ATARAX [Concomitant]
     Route: 048
  4. CARBADOPA/LEVODOPA [Concomitant]
     Dosage: 25/100
     Route: 048
  5. AMIODARONE HCL [Concomitant]
     Route: 048
  6. DUONEB [Concomitant]
     Route: 055
  7. ECOTRIN [Concomitant]
     Route: 048
  8. LASIX [Concomitant]
     Route: 048
  9. GLUCOPHAGE [Concomitant]
     Route: 048
  10. IMDUR [Concomitant]
     Route: 048
  11. K-DUR 10 [Concomitant]
     Route: 048
  12. VYTORIN [Concomitant]
     Route: 048
  13. MULTI-VITAMIN [Concomitant]
     Route: 048
  14. NIASPIN ER [Concomitant]
     Route: 048
  15. NITROSTAT [Concomitant]
     Route: 048
  16. NORVASC [Concomitant]
     Route: 048
  17. HUMALOG [Concomitant]
     Dosage: 20 UNITS
     Route: 058
  18. HUMALIN [Concomitant]
     Dosage: 40 UNITS
     Route: 058
  19. VITAMIN E [Concomitant]
     Route: 048
  20. ZOLOFT [Concomitant]
     Route: 048

REACTIONS (1)
  - ACNE [None]
